FAERS Safety Report 8782109 (Version 1)
Quarter: 2012Q4

REPORT INFORMATION
  Report Type: 
  Country: US (occurrence: US)
  Receive Date: 20120913
  Receipt Date: 20120913
  Transmission Date: 20130627
  Serious: No
  Sender: FDA-Public Use
  Company Number: US-VERTEX PHARMACEUTICAL INC.-2012-020059

PATIENT
  Age: 45 Year
  Sex: Female
  Weight: 61 kg

DRUGS (3)
  1. INCIVEK [Suspect]
     Indication: HEPATITIS C
     Dosage: 750 mg, tid
     Route: 048
     Dates: start: 20120816
  2. PEGASYS [Concomitant]
     Indication: HEPATITIS C
     Dosage: 180 ?g, weekly
     Dates: start: 20120816
  3. COPEGUS [Concomitant]
     Indication: HEPATITIS C
     Dosage: 600 mg, bid
     Route: 048
     Dates: start: 20120816

REACTIONS (4)
  - Pyrexia [Not Recovered/Not Resolved]
  - Pain [Not Recovered/Not Resolved]
  - Asthenia [Not Recovered/Not Resolved]
  - Nausea [Not Recovered/Not Resolved]
